FAERS Safety Report 12433725 (Version 1)
Quarter: 2016Q2

REPORT INFORMATION
  Report Type: Spontaneous
  Country: US (occurrence: US)
  Receive Date: 20160603
  Receipt Date: 20160603
  Transmission Date: 20160815
  Serious: Yes (Other)
  Sender: FDA-Public Use
  Company Number: US-BAYER-2016-101293

PATIENT
  Sex: Male

DRUGS (2)
  1. CIPROFLOXACIN. [Suspect]
     Active Substance: CIPROFLOXACIN
  2. LEVAQUIN [Suspect]
     Active Substance: LEVOFLOXACIN

REACTIONS (7)
  - Mental disorder [None]
  - Hypoacusis [None]
  - Skin injury [None]
  - Cardiovascular disorder [None]
  - Musculoskeletal disorder [None]
  - Neuropathy peripheral [None]
  - Visual impairment [None]

NARRATIVE: CASE EVENT DATE: 2008
